FAERS Safety Report 5711972-7 (Version None)
Quarter: 2008Q2

REPORT INFORMATION
  Report Type: 
  Country: None (occurrence: None)
  Receive Date: 20080416
  Receipt Date: 20080404
  Transmission Date: 20081010
  Serious: Yes (Other)
  Sender: FDA-Public Use
  Company Number: GXKR2008GB03333

PATIENT
  Age: 53 Year
  Sex: Male

DRUGS (7)
  1. MIRTAZAPINE [Suspect]
     Indication: DEPRESSION
     Dosage: 15-30 MG, ORAL, 15 MG, ORAL, 15 MG, ORAL, 30 MG, ORAL
     Route: 048
     Dates: start: 20070201, end: 20070529
  2. MIRTAZAPINE [Suspect]
     Indication: DEPRESSION
     Dosage: 15-30 MG, ORAL, 15 MG, ORAL, 15 MG, ORAL, 30 MG, ORAL
     Route: 048
     Dates: start: 20070529, end: 20070608
  3. MIRTAZAPINE [Suspect]
     Indication: DEPRESSION
     Dosage: 15-30 MG, ORAL, 15 MG, ORAL, 15 MG, ORAL, 30 MG, ORAL
     Route: 048
     Dates: start: 20070906, end: 20070914
  4. MIRTAZAPINE [Suspect]
     Indication: DEPRESSION
     Dosage: 15-30 MG, ORAL, 15 MG, ORAL, 15 MG, ORAL, 30 MG, ORAL
     Route: 048
     Dates: start: 20070914
  5. ALCOHOL(ETHANOL) [Suspect]
  6. DOSULEPIN (DOSULEPIN) [Concomitant]
  7. ESCITALOPRAM OXALATE [Concomitant]

REACTIONS (10)
  - ABNORMAL DREAMS [None]
  - AGGRESSION [None]
  - ALCOHOL INTERACTION [None]
  - ALCOHOL POISONING [None]
  - ALTERED STATE OF CONSCIOUSNESS [None]
  - AMNESIA [None]
  - DRUG LEVEL INCREASED [None]
  - HOMICIDE [None]
  - JOINT SWELLING [None]
  - OEDEMA PERIPHERAL [None]
